FAERS Safety Report 15733738 (Version 1)
Quarter: 2018Q4

REPORT INFORMATION
  Report Type: Spontaneous
  Country: CO (occurrence: CO)
  Receive Date: 20181218
  Receipt Date: 20181218
  Transmission Date: 20190205
  Serious: Yes (Hospitalization)
  Sender: FDA-Public Use
  Company Number: CO-ABBVIE-18P-036-2588624-00

PATIENT
  Age: 20 Year
  Sex: Male
  Weight: 85 kg

DRUGS (4)
  1. VALCOATE ER [Suspect]
     Active Substance: DIVALPROEX SODIUM
     Route: 048
     Dates: start: 201807, end: 20181204
  2. ZYREXA [Concomitant]
     Indication: BIPOLAR DISORDER
     Route: 048
     Dates: start: 201807
  3. VALCOATE ER [Suspect]
     Active Substance: DIVALPROEX SODIUM
     Indication: BIPOLAR DISORDER
     Route: 048
     Dates: start: 2017, end: 201807
  4. CLONAZEPAM. [Concomitant]
     Active Substance: CLONAZEPAM
     Indication: PRODUCT USED FOR UNKNOWN INDICATION
     Route: 048

REACTIONS (3)
  - Drug level decreased [Unknown]
  - Mania [Recovered/Resolved]
  - Suspected product quality issue [Unknown]

NARRATIVE: CASE EVENT DATE: 201807
